FAERS Safety Report 8355306-0 (Version None)
Quarter: 2012Q2

REPORT INFORMATION
  Report Type: 
  Country: None (occurrence: None)
  Receive Date: 20120511
  Receipt Date: 20120507
  Transmission Date: 20120825
  Serious: No
  Sender: FDA-Public Use
  Company Number: US-BAYER-2012-045775

PATIENT
  Age: 14 Year
  Sex: Female

DRUGS (1)
  1. NAPROXEN SODIUM [Suspect]
     Indication: DYSMENORRHOEA
     Route: 048

REACTIONS (5)
  - BACK PAIN [None]
  - DISTURBANCE IN ATTENTION [None]
  - ABDOMINAL PAIN UPPER [None]
  - PAIN IN EXTREMITY [None]
  - DYSMENORRHOEA [None]
